FAERS Safety Report 8904732 (Version 1)
Quarter: 2012Q4

REPORT INFORMATION
  Report Type: 
  Country: AU (occurrence: AU)
  Receive Date: 20121113
  Receipt Date: 20121113
  Transmission Date: 20130627
  Serious: Yes (Other)
  Sender: FDA-Public Use
  Company Number: PHHY2012AU103838

PATIENT
  Age: 73 Year
  Sex: Male

DRUGS (1)
  1. TRAMADOL SANDOZ [Suspect]
     Indication: PAIN
     Dosage: 2 DF
     Route: 048

REACTIONS (1)
  - Asthma [Unknown]
